FAERS Safety Report 4780087-7 (Version None)
Quarter: 2005Q3

REPORT INFORMATION
  Report Type: 
  Country: None (occurrence: None)
  Receive Date: 20050914
  Receipt Date: 20050427
  Transmission Date: 20060218
  Serious: Yes (Hospitalization)
  Sender: FDA-Public Use
  Company Number: 163-20785-03030046

PATIENT
  Age: 53 Year
  Sex: Female

DRUGS (18)
  1. THALOMID [Suspect]
     Indication: MULTIPLE MYELOMA
     Dosage: 100 MG, QD, ORAL
     Route: 048
     Dates: start: 20020712
  2. MELPHALAN (MELPHALAN) [Suspect]
     Indication: MULTIPLE MYELOMA
     Dosage: 340 MG, QD, INTRAVENOUS;  200 MG/M2
     Route: 042
     Dates: start: 20030910, end: 20030910
  3. MELPHALAN (MELPHALAN) [Suspect]
     Indication: MULTIPLE MYELOMA
     Dosage: 340 MG, QD, INTRAVENOUS;  200 MG/M2
     Route: 042
     Dates: start: 20030130
  4. DEXAMETHASONE [Suspect]
     Indication: MULTIPLE MYELOMA
     Dosage: 40 MG, X4 DAYS Q MONTH, ORAL
     Route: 048
     Dates: start: 20020722
  5. DEXAMETHASONE [Suspect]
     Indication: MULTIPLE MYELOMA
     Dosage: 40 MG, X4 DAYS Q MONTH, ORAL
     Route: 048
     Dates: start: 20020828
  6. DEXAMETHASONE [Suspect]
     Indication: MULTIPLE MYELOMA
     Dosage: 40 MG, X4 DAYS Q MONTH, ORAL
     Route: 048
     Dates: start: 20021004
  7. DEXAMETHASONE [Suspect]
     Indication: MULTIPLE MYELOMA
     Dosage: 40 MG, X4 DAYS Q MONTH, ORAL
     Route: 048
     Dates: start: 20040101
  8. VINCRISTINE [Suspect]
     Indication: MULTIPLE MYELOMA
     Dates: start: 20020722
  9. ADRIAMYCIN PFS [Suspect]
     Indication: MULTIPLE MYELOMA
     Dates: start: 20020722
  10. CYCLOPHOSPHAMIDE [Suspect]
     Indication: MULTIPLE MYELOMA
     Dates: start: 20020828
  11. CYCLOPHOSPHAMIDE [Suspect]
     Indication: MULTIPLE MYELOMA
     Dates: start: 20021004
  12. CYCLOPHOSPHAMIDE [Suspect]
     Indication: MULTIPLE MYELOMA
     Dates: start: 20021004
  13. ETOPOSIDE [Suspect]
     Indication: MULTIPLE MYELOMA
     Dates: start: 20020828
  14. CISPLATIN [Suspect]
     Indication: MULTIPLE MYELOMA
     Dates: start: 20020828
  15. BACTRIM DS [Concomitant]
  16. MS CONTIN [Concomitant]
  17. ZOLOFT [Concomitant]
  18. ARANESP [Concomitant]

REACTIONS (8)
  - DEEP VEIN THROMBOSIS [None]
  - DEHYDRATION [None]
  - DIARRHOEA [None]
  - MUCOSAL INFLAMMATION [None]
  - NAUSEA [None]
  - OEDEMA PERIPHERAL [None]
  - PAIN IN EXTREMITY [None]
  - VOMITING [None]
